FAERS Safety Report 7279180-9 (Version None)
Quarter: 2011Q1

REPORT INFORMATION
  Report Type: 
  Country: None (occurrence: None)
  Receive Date: 20110207
  Receipt Date: 20110204
  Transmission Date: 20110831
  Serious: No
  Sender: FDA-Public Use
  Company Number: US-PFIZER INC-2011026233

PATIENT
  Sex: Male

DRUGS (2)
  1. ADVIL [Suspect]
     Indication: NASOPHARYNGITIS
     Dosage: 400 MG, 1X/DAY
     Route: 048
     Dates: start: 20101201
  2. ADVIL [Suspect]
     Indication: HEADACHE

REACTIONS (1)
  - RASH MACULAR [None]
